FAERS Safety Report 14786711 (Version 14)
Quarter: 2019Q1

REPORT INFORMATION
  Report Type: Report from Study
  Country: US (occurrence: US)
  Receive Date: 20180420
  Receipt Date: 20190201
  Transmission Date: 20190417
  Serious: Yes (Hospitalization)
  Sender: FDA-Public Use
  Company Number: US-ACTELION-A-US2018-170797

PATIENT
  Age: 14 Month
  Sex: Female
  Weight: 14.97 kg

DRUGS (27)
  1. BOSENTAN TABLET 32 MG PED US [Suspect]
     Active Substance: BOSENTAN
     Indication: PULMONARY HYPERTENSION
     Dosage: 24 MG, BID BY MOUTH OR BY J-TUBE
     Route: 048
     Dates: start: 2018
  2. BUMEX [Concomitant]
     Active Substance: BUMETANIDE
     Dosage: 0.5 MG, UNK
  3. PULMOZYME [Concomitant]
     Active Substance: DORNASE ALFA
  4. TRIAMCINOLONE [Concomitant]
     Active Substance: TRIAMCINOLONE
  5. CIPROFLOXACIN. [Concomitant]
     Active Substance: CIPROFLOXACIN
     Dosage: 250 MG, UNK
  6. IBUPROFEN. [Concomitant]
     Active Substance: IBUPROFEN
  7. MELATONIN [Concomitant]
     Active Substance: MELATONIN
  8. POTASSIUM CHLORIDE. [Concomitant]
     Active Substance: POTASSIUM CHLORIDE
  9. AQUAPHOR [Concomitant]
     Active Substance: PETROLATUM
  10. SPIRONOLACTONE. [Concomitant]
     Active Substance: SPIRONOLACTONE
     Dosage: 25 MG, UNK
  11. POLYETHYLENE GLYCOL [Concomitant]
     Active Substance: POLYETHYLENE GLYCOLS
  12. POLY-VI-SOL [Concomitant]
     Active Substance: VITAMINS
  13. PEDIA-LAX STOOL SOFTENER [Concomitant]
  14. BETHKIS [Concomitant]
     Active Substance: TOBRAMYCIN
  15. REMODULIN [Suspect]
     Active Substance: TREPROSTINIL
     Indication: PULMONARY HYPERTENSION
     Dosage: 82 NG/KG, PER MIN
     Route: 058
     Dates: start: 20180509
  16. BUDESONIDE. [Concomitant]
     Active Substance: BUDESONIDE
  17. DESITIN [Concomitant]
     Active Substance: ZINC OXIDE
  18. DIURAL [Concomitant]
     Active Substance: FUROSEMIDE
     Dosage: 250/5 ML
  19. LUBRI [Concomitant]
  20. BOSENTAN TABLET 32 MG PED US [Suspect]
     Active Substance: BOSENTAN
     Dosage: 32 MG, BID BY MOUTH OR BY G-TUBE
     Route: 048
  21. REVATIO [Suspect]
     Active Substance: SILDENAFIL CITRATE
     Indication: PRODUCT USED FOR UNKNOWN INDICATION
     Dosage: 10 MG/ML, TID
     Route: 065
  22. REVATIO [Suspect]
     Active Substance: SILDENAFIL CITRATE
     Dosage: 40 MG, TID
     Route: 065
  23. MULTIVITAMIN [Concomitant]
     Active Substance: VITAMINS
  24. ONDANSETRON [Concomitant]
     Active Substance: ONDANSETRON
  25. BANOPHEN [Concomitant]
     Active Substance: DIPHENHYDRAMINE HYDROCHLORIDE
  26. DESLORATADINE. [Concomitant]
     Active Substance: DESLORATADINE
  27. SODIUM CHLORIDE. [Concomitant]
     Active Substance: SODIUM CHLORIDE

REACTIONS (16)
  - Unevaluable event [Recovered/Resolved]
  - Bacterial infection [Unknown]
  - Vomiting [Unknown]
  - Oxygen consumption increased [Unknown]
  - Heart rate increased [Unknown]
  - Catheter site pain [Unknown]
  - Fatigue [Unknown]
  - Oxygen saturation decreased [Not Recovered/Not Resolved]
  - Diarrhoea [Unknown]
  - Respiratory distress [Unknown]
  - Heart rate decreased [Unknown]
  - Weight decreased [Unknown]
  - Oedema [Recovering/Resolving]
  - Hospitalisation [Unknown]
  - Adverse drug reaction [Recovered/Resolved]
  - Blood urea increased [Unknown]

NARRATIVE: CASE EVENT DATE: 20180815
